FAERS Safety Report 26210295 (Version 1)
Quarter: 2025Q4

REPORT INFORMATION
  Report Type: Spontaneous
  Country: GB (occurrence: GB)
  Receive Date: 20251229
  Receipt Date: 20251229
  Transmission Date: 20260118
  Serious: Yes (Disabling)
  Sender: NOVO NORDISK
  Company Number: GB-NOVOPROD-1590790

PATIENT
  Sex: Male

DRUGS (1)
  1. NORDITROPIN [Suspect]
     Active Substance: SOMATROPIN
     Indication: Hypopituitarism
     Dosage: 5 MG (ASD (AS DIRECTED)(DELIVERY START DATE: 26-OCT-2020)
     Route: 058

REACTIONS (1)
  - Mobility decreased [Unknown]
